FAERS Safety Report 15175381 (Version 1)
Quarter: 2018Q3

REPORT INFORMATION
  Report Type: Report from Study
  Country: US (occurrence: US)
  Receive Date: 20180720
  Receipt Date: 20180720
  Transmission Date: 20181010
  Serious: No
  Sender: FDA-Public Use
  Company Number: US-AMGEN-USASL2018060644

PATIENT
  Age: 70 Year
  Sex: Female

DRUGS (1)
  1. REPATHA [Suspect]
     Active Substance: EVOLOCUMAB
     Indication: TYPE IIA HYPERLIPIDAEMIA
     Dosage: 420 MG, QMO
     Route: 065
     Dates: start: 201705

REACTIONS (5)
  - Injection site erythema [Unknown]
  - Injection site mass [Unknown]
  - Injection site haemorrhage [Unknown]
  - Low density lipoprotein increased [Unknown]
  - Off label use [Unknown]

NARRATIVE: CASE EVENT DATE: 2018
